FAERS Safety Report 19002979 (Version 1)
Quarter: 2021Q1

REPORT INFORMATION
  Report Type: Spontaneous
  Country: GB (occurrence: GB)
  Receive Date: 20210312
  Receipt Date: 20210312
  Transmission Date: 20210420
  Serious: Yes (Other)
  Sender: FDA-Public Use
  Company Number: GB-ORGANON-O2103GBR001116

PATIENT
  Age: 9 Year
  Sex: Male
  Weight: 41.27 kg

DRUGS (1)
  1. MONTELUKAST SODIUM. [Suspect]
     Active Substance: MONTELUKAST SODIUM
     Indication: ASTHMA
     Dosage: 5 MILLIGRAM, QD
     Route: 048
     Dates: start: 201702, end: 20191209

REACTIONS (6)
  - Arthropathy [Not Recovered/Not Resolved]
  - Asthma [Recovered/Resolved]
  - Anxiety [Recovering/Resolving]
  - Depressed mood [Recovering/Resolving]
  - Contusion [Recovered/Resolved]
  - Aggression [Recovered/Resolved]

NARRATIVE: CASE EVENT DATE: 201705
